FAERS Safety Report 5752965-3 (Version None)
Quarter: 2008Q2

REPORT INFORMATION
  Report Type: 
  Country: None (occurrence: None)
  Receive Date: 20080529
  Receipt Date: 20080522
  Transmission Date: 20081010
  Serious: Yes (Other)
  Sender: FDA-Public Use
  Company Number: US-MERCK-0805USA03650

PATIENT
  Age: 68 Year
  Sex: Female

DRUGS (7)
  1. SINGULAIR [Suspect]
     Indication: ASTHMA
     Route: 048
     Dates: start: 20080201
  2. SINGULAIR [Suspect]
     Indication: HYPERSENSITIVITY
     Route: 048
     Dates: start: 20080201
  3. ZIAC [Concomitant]
     Indication: HYPERTENSION
     Route: 065
  4. BONIVA [Concomitant]
     Indication: OSTEOPOROSIS
     Route: 065
  5. CRESTOR [Concomitant]
     Indication: BLOOD CHOLESTEROL
     Route: 065
  6. APRACLONIDINE [Concomitant]
     Indication: NERVOUSNESS
     Route: 065
  7. KLONOPIN [Concomitant]
     Route: 065

REACTIONS (1)
  - SUICIDAL IDEATION [None]
